FAERS Safety Report 7294028-4 (Version None)
Quarter: 2011Q1

REPORT INFORMATION
  Report Type: 
  Country: None (occurrence: None)
  Receive Date: 20110215
  Receipt Date: 20110204
  Transmission Date: 20110831
  Serious: Yes (Other)
  Sender: FDA-Public Use
  Company Number: CA-JNJCH-2011003307

PATIENT
  Age: 20 Year
  Sex: Female
  Weight: 56.2 kg

DRUGS (4)
  1. FLOVENT [Concomitant]
     Indication: ASTHMA
     Dosage: TEXT:UNKNOWN
     Route: 065
  2. SYNTHROID [Concomitant]
     Indication: THYROID DISORDER
     Dosage: TEXT:UNKNOWN
     Route: 065
  3. VENTOLIN [Concomitant]
     Indication: ASTHMA
     Dosage: TEXT:UNKNOWN
     Route: 065
  4. ROLAIDS TAB [Suspect]
     Indication: DYSPEPSIA
     Dosage: TEXT:TWO TABLETS ONE TO FIVE TIMES PER DAY
     Route: 048

REACTIONS (4)
  - ABORTION SPONTANEOUS [None]
  - DRUG EXPOSURE DURING PREGNANCY [None]
  - PRODUCT ODOUR ABNORMAL [None]
  - VOMITING [None]
